FAERS Safety Report 5930959-2 (Version None)
Quarter: 2008Q4

REPORT INFORMATION
  Report Type: 
  Country: None (occurrence: None)
  Receive Date: 20081003
  Receipt Date: 20071116
  Transmission Date: 20090506
  Serious: Yes (Life-Threatening, Hospitalization)
  Sender: FDA-Public Use
  Company Number: 2007096933

PATIENT
  Age: 49 Year
  Sex: Female
  Weight: 47.7 kg

DRUGS (12)
  1. ADRIAMYCIN PFS [Suspect]
     Indication: BREAST CANCER
     Dosage: 73 MG (50 MG/M*2), INTRAVENOUS
     Route: 042
     Dates: start: 20070712
  2. TAXOTERE [Suspect]
     Indication: BREAST CANCER
     Dosage: 90 MG (75 MG/M*2, 75 EVERY 3 WEEKS), INTRAVENOUS
     Route: 042
     Dates: start: 20070510, end: 20070823
  3. CYCLOPHOSPHAMIDE [Suspect]
     Indication: BREAST CANCER
     Dosage: 730 MG
     Dates: start: 20070712
  4. NEULASTA [Concomitant]
  5. FENTANYL-100 [Concomitant]
  6. ACETAMINOPHEN [Concomitant]
  7. PERCOCET [Concomitant]
  8. WARFARIN SODIUM [Concomitant]
  9. PANTOPRAZOLE SODIUM [Concomitant]
  10. FOLIC ACID [Concomitant]
  11. VITAMIN B COMPLEX CAP [Concomitant]
  12. VITAMIN B12 [Concomitant]

REACTIONS (6)
  - FEBRILE NEUTROPENIA [None]
  - HAEMOGLOBIN DECREASED [None]
  - HYPOTENSION [None]
  - NEUTROPHIL COUNT [None]
  - PNEUMONIA [None]
  - WHITE BLOOD CELL COUNT DECREASED [None]
